FAERS Safety Report 11948302 (Version 2)
Quarter: 2016Q1

REPORT INFORMATION
  Report Type: Report from Study
  Country: BR (occurrence: BR)
  Receive Date: 20160125
  Receipt Date: 20160208
  Transmission Date: 20160526
  Serious: Yes (Other)
  Sender: FDA-Public Use
  Company Number: PHHY2016BR007893

PATIENT
  Sex: Female
  Weight: 54 kg

DRUGS (5)
  1. DEPURA [Suspect]
     Active Substance: CHOLECALCIFEROL
     Indication: ARTHROPATHY
     Dosage: 20 DRP, QD
     Route: 048
     Dates: start: 20151007
  2. ACLASTA [Suspect]
     Active Substance: ZOLEDRONIC ACID
     Indication: OSTEOPOROSIS
     Dosage: 5 MG, Q12MO (ONCE A YEAR)
     Route: 042
     Dates: start: 20151007
  3. OSCAL D [Suspect]
     Active Substance: CALCIUM CARBONATE\CHOLECALCIFEROL
     Indication: ARTHROPATHY
     Dosage: 500 MG, BID
     Route: 048
     Dates: start: 20151007
  4. ACLASTA [Suspect]
     Active Substance: ZOLEDRONIC ACID
     Indication: ARTHROPATHY
  5. CALCIUM [Concomitant]
     Active Substance: CALCIUM
     Indication: PRODUCT USED FOR UNKNOWN INDICATION
     Dosage: 500 MG, BID (IN THE MORNING AND AT NIGHT)
     Route: 065

REACTIONS (3)
  - Bone disorder [Unknown]
  - Skeletal injury [Unknown]
  - Weight increased [Recovered/Resolved]
